FAERS Safety Report 9284956 (Version 2)
Quarter: 2013Q3

REPORT INFORMATION
  Report Type: Spontaneous
  Country: TR (occurrence: TR)
  Receive Date: 20130513
  Receipt Date: 20130718
  Transmission Date: 20140515
  Serious: Yes (Other)
  Sender: FDA-Public Use
  Company Number: PHHY2013TR044672

PATIENT
  Sex: Female

DRUGS (3)
  1. LETROZOLE [Suspect]
     Indication: OVULATION INDUCTION
     Dosage: 2.5 MG, UNK
     Route: 048
  2. CETRORELIX ACETATE [Suspect]
     Indication: OVULATION INDUCTION
     Dosage: 0.25 MG, UNK
  3. GONADOTROPIN [Suspect]
     Indication: OVULATION INDUCTION
     Dosage: UNK

REACTIONS (2)
  - Ectopic pregnancy [Unknown]
  - Maternal exposure during pregnancy [Unknown]
